FAERS Safety Report 7622578-7 (Version None)
Quarter: 2011Q3

REPORT INFORMATION
  Report Type: 
  Country: None (occurrence: None)
  Receive Date: 20110719
  Receipt Date: 20110719
  Transmission Date: 20111222
  Serious: No
  Sender: FDA-Public Use
  Company Number: None

PATIENT
  Age: 39 Year
  Sex: Male
  Weight: 72 kg

DRUGS (1)
  1. PROPECIA [Suspect]
     Indication: ALOPECIA
     Dosage: 1MG EVERY DAY PO
     Route: 048
     Dates: start: 19990729, end: 20071215

REACTIONS (39)
  - TESTICULAR ATROPHY [None]
  - PALPITATIONS [None]
  - GYNAECOMASTIA [None]
  - MEMORY IMPAIRMENT [None]
  - COGNITIVE DISORDER [None]
  - MUSCLE CONTRACTIONS INVOLUNTARY [None]
  - MUSCLE TWITCHING [None]
  - FAT TISSUE INCREASED [None]
  - DEPRESSION [None]
  - ERECTILE DYSFUNCTION [None]
  - PENILE SIZE REDUCED [None]
  - PENIS DISORDER [None]
  - SOMATOFORM DISORDER [None]
  - FATIGUE [None]
  - OSTEOARTHRITIS [None]
  - FLATULENCE [None]
  - MENTAL DISORDER [None]
  - DISTURBANCE IN ATTENTION [None]
  - ANHEDONIA [None]
  - LOSS OF LIBIDO [None]
  - MALE SEXUAL DYSFUNCTION [None]
  - PENILE CURVATURE [None]
  - PROSTATITIS [None]
  - WEIGHT INCREASED [None]
  - MIDDLE INSOMNIA [None]
  - NEUROLOGICAL SYMPTOM [None]
  - ANXIETY [None]
  - EMOTIONAL DISORDER [None]
  - TACHYCARDIA [None]
  - SLEEP DISORDER [None]
  - FIBROSIS [None]
  - DYSPEPSIA [None]
  - PANIC ATTACK [None]
  - TREMOR [None]
  - PENILE VASCULAR DISORDER [None]
  - MUSCULAR WEAKNESS [None]
  - APATHY [None]
  - TIC [None]
  - NERVOUSNESS [None]
